FAERS Safety Report 9136736 (Version 1)
Quarter: 2013Q1

REPORT INFORMATION
  Report Type: Spontaneous
  Country: US (occurrence: US)
  Receive Date: 20130304
  Receipt Date: 20130304
  Transmission Date: 20140127
  Serious: No
  Sender: FDA-Public Use
  Company Number: US-ABBOTT-13P-163-1047392-00

PATIENT
  Sex: Female

DRUGS (1)
  1. ANDROGEL [Suspect]
     Indication: ACCIDENTAL EXPOSURE TO PRODUCT

REACTIONS (8)
  - Hypertonia [Unknown]
  - Accidental exposure to product [Unknown]
  - Mood swings [Unknown]
  - Affect lability [Unknown]
  - Anger [Unknown]
  - Dysmorphism [Unknown]
  - Dysphonia [Unknown]
  - Blood testosterone increased [Not Recovered/Not Resolved]
